FAERS Safety Report 20451413 (Version 3)
Quarter: 2022Q1

REPORT INFORMATION
  Report Type: Spontaneous
  Country: PL (occurrence: PL)
  Receive Date: 20220209
  Receipt Date: 20220304
  Transmission Date: 20220423
  Serious: Yes (Hospitalization, Other)
  Sender: FDA-Public Use
  Company Number: PL-BAYER-2022A012592

PATIENT
  Age: 1 Year
  Sex: Male

DRUGS (19)
  1. ANTIHEMOPHILIC FACTOR, HUMAN RECOMBINANT [Suspect]
     Active Substance: ANTIHEMOPHILIC FACTOR, HUMAN RECOMBINANT
     Indication: Factor VIII deficiency
     Dosage: 25 INTERNATIONAL UNIT/KILOGRAM
     Route: 065
  2. ANTIHEMOPHILIC FACTOR, HUMAN RECOMBINANT [Suspect]
     Active Substance: ANTIHEMOPHILIC FACTOR, HUMAN RECOMBINANT
     Indication: Factor VIII deficiency
     Dosage: 25 INTERNATIONAL UNIT/KILOGRAM
     Route: 065
  3. ANTIHEMOPHILIC FACTOR, HUMAN RECOMBINANT [Suspect]
     Active Substance: ANTIHEMOPHILIC FACTOR, HUMAN RECOMBINANT
     Indication: Factor VIII deficiency
     Dosage: 25 INTERNATIONAL UNIT/KILOGRAM
     Route: 065
  4. ANTIHEMOPHILIC FACTOR, HUMAN RECOMBINANT [Suspect]
     Active Substance: ANTIHEMOPHILIC FACTOR, HUMAN RECOMBINANT
     Dosage: 100 INTERNATIONAL UNIT/KILOGRAM, QD
     Route: 065
     Dates: start: 20020203
  5. ANTIHEMOPHILIC FACTOR, HUMAN RECOMBINANT [Suspect]
     Active Substance: ANTIHEMOPHILIC FACTOR, HUMAN RECOMBINANT
     Dosage: 100 INTERNATIONAL UNIT/KILOGRAM, QD
     Route: 065
     Dates: start: 20020203
  6. ANTIHEMOPHILIC FACTOR, HUMAN RECOMBINANT [Suspect]
     Active Substance: ANTIHEMOPHILIC FACTOR, HUMAN RECOMBINANT
     Dosage: 100 INTERNATIONAL UNIT/KILOGRAM, QD
     Route: 065
     Dates: start: 20020203
  7. ANTIHEMOPHILIC FACTOR, HUMAN RECOMBINANT [Suspect]
     Active Substance: ANTIHEMOPHILIC FACTOR, HUMAN RECOMBINANT
     Dosage: 25 INTERNATIONAL UNIT/KILOGRAM
     Route: 065
  8. ANTIHEMOPHILIC FACTOR, HUMAN RECOMBINANT [Suspect]
     Active Substance: ANTIHEMOPHILIC FACTOR, HUMAN RECOMBINANT
     Dosage: 25 INTERNATIONAL UNIT/KILOGRAM
     Route: 065
  9. ANTIHEMOPHILIC FACTOR, HUMAN RECOMBINANT [Suspect]
     Active Substance: ANTIHEMOPHILIC FACTOR, HUMAN RECOMBINANT
     Dosage: 25 INTERNATIONAL UNIT/KILOGRAM
     Route: 065
  10. ANTIHEMOPHILIC FACTOR, HUMAN RECOMBINANT [Suspect]
     Active Substance: ANTIHEMOPHILIC FACTOR, HUMAN RECOMBINANT
     Dosage: 25 INTERNATIONAL UNIT/KILOGRAM
     Route: 065
  11. ANTIHEMOPHILIC FACTOR, HUMAN RECOMBINANT [Suspect]
     Active Substance: ANTIHEMOPHILIC FACTOR, HUMAN RECOMBINANT
     Dosage: 25 INTERNATIONAL UNIT/KILOGRAM
     Route: 065
  12. ANTIHEMOPHILIC FACTOR, HUMAN RECOMBINANT [Suspect]
     Active Substance: ANTIHEMOPHILIC FACTOR, HUMAN RECOMBINANT
     Dosage: 25 INTERNATIONAL UNIT/KILOGRAM
     Route: 065
  13. ANTIHEMOPHILIC FACTOR, HUMAN RECOMBINANT [Suspect]
     Active Substance: ANTIHEMOPHILIC FACTOR, HUMAN RECOMBINANT
     Dosage: 200 INTERNATIONAL UNIT/KILOGRAM, BID
     Route: 065
  14. ANTIHEMOPHILIC FACTOR, HUMAN RECOMBINANT [Suspect]
     Active Substance: ANTIHEMOPHILIC FACTOR, HUMAN RECOMBINANT
     Dosage: 200 INTERNATIONAL UNIT/KILOGRAM, BID
     Route: 065
  15. ANTIHEMOPHILIC FACTOR, HUMAN RECOMBINANT [Suspect]
     Active Substance: ANTIHEMOPHILIC FACTOR, HUMAN RECOMBINANT
     Dosage: 200 INTERNATIONAL UNIT/KILOGRAM, BID
     Route: 065
  16. ANTIHEMOPHILIC FACTOR, HUMAN RECOMBINANT [Suspect]
     Active Substance: ANTIHEMOPHILIC FACTOR, HUMAN RECOMBINANT
     Dosage: 25 INTERNATIONAL UNIT/KILOGRAM, 2/WEEK
     Route: 065
  17. ANTIHEMOPHILIC FACTOR, HUMAN RECOMBINANT [Suspect]
     Active Substance: ANTIHEMOPHILIC FACTOR, HUMAN RECOMBINANT
     Dosage: 25 INTERNATIONAL UNIT/KILOGRAM, 2/WEEK
     Route: 065
  18. ANTIHEMOPHILIC FACTOR, HUMAN RECOMBINANT [Suspect]
     Active Substance: ANTIHEMOPHILIC FACTOR, HUMAN RECOMBINANT
     Dosage: 25 INTERNATIONAL UNIT/KILOGRAM, 2/WEEK
     Route: 065
  19. AMIKIN [Concomitant]
     Active Substance: AMIKACIN SULFATE
     Indication: Vascular device infection
     Dosage: UNK
     Route: 065

REACTIONS (11)
  - Device related infection [Unknown]
  - Soft tissue haemorrhage [Recovering/Resolving]
  - Cerebral haemorrhage [Recovering/Resolving]
  - Muscle haemorrhage [Unknown]
  - Haemarthrosis [Unknown]
  - Haematoma [Unknown]
  - Device related thrombosis [Unknown]
  - Anti factor VIII antibody positive [Unknown]
  - Drug ineffective [Unknown]
  - Paresis [Recovered/Resolved]
  - Extremity contracture [Recovered/Resolved]
